FAERS Safety Report 20648129 (Version 1)
Quarter: 2022Q1

REPORT INFORMATION
  Report Type: Spontaneous
  Country: CA (occurrence: None)
  Receive Date: 20220328
  Receipt Date: 20220328
  Transmission Date: 20220423
  Serious: Yes (Other)
  Sender: FDA-Public Use
  Company Number: None

PATIENT
  Age: 79 Year
  Sex: Female
  Weight: 72 kg

DRUGS (25)
  1. SYSTANE COMPLETE [Suspect]
     Active Substance: PROPYLENE GLYCOL
     Indication: Dry eye
     Dosage: FREQUENCY : 3 TIMES A DAY;?
     Route: 047
     Dates: start: 20220310, end: 20220327
  2. CORTISONE [Concomitant]
     Active Substance: CORTISONE
  3. FLORINEF ACETATE [Concomitant]
     Active Substance: FLUDROCORTISONE ACETATE
  4. SYNTHROID [Concomitant]
     Active Substance: LEVOTHYROXINE SODIUM
  5. CANDESARTAN CILEXETIL\HYDROCHLOROTHIAZIDE [Concomitant]
     Active Substance: CANDESARTAN CILEXETIL\HYDROCHLOROTHIAZIDE
  6. Parrot [Concomitant]
  7. NITRAZEPAM [Concomitant]
     Active Substance: NITRAZEPAM
  8. TRIMEBUTINE [Concomitant]
     Active Substance: TRIMEBUTINE
  9. ASPIRIN [Concomitant]
     Active Substance: ASPIRIN
  10. Reactine [Concomitant]
  11. Alomide OP [Concomitant]
  12. NASONEX [Concomitant]
     Active Substance: MOMETASONE FUROATE
  13. VITAMIN C [Concomitant]
     Active Substance: ASCORBIC ACID
  14. VITAMIN D NOS [Concomitant]
     Active Substance: VITAMIN D NOS
  15. VITAMIN B-COMPLEX [Concomitant]
     Active Substance: DEXPANTHENOL\NIACINAMIDE\PYRIDOXINE HYDROCHLORIDE\RIBOFLAVIN 5^-PHOSPHATE SODIUM\THIAMINE HYDROCHLOR
  16. VITAMIN B12 [Concomitant]
     Active Substance: CYANOCOBALAMIN
  17. HERBALS [Concomitant]
     Active Substance: HERBALS
  18. DIETARY SUPPLEMENT\HERBALS\INDIAN FRANKINCENSE [Concomitant]
     Active Substance: DIETARY SUPPLEMENT\HERBALS\INDIAN FRANKINCENSE
  19. QUERCETIN [Concomitant]
     Active Substance: QUERCETIN
  20. LUTEIN [Concomitant]
     Active Substance: LUTEIN
  21. BORON [Concomitant]
     Active Substance: BORON
  22. BIOTIN [Concomitant]
     Active Substance: BIOTIN
  23. MAGNESIUM [Concomitant]
     Active Substance: MAGNESIUM
  24. NAC [Concomitant]
  25. HERBALS [Concomitant]
     Active Substance: HERBALS

REACTIONS (9)
  - Sinus congestion [None]
  - Dyspnoea [None]
  - Chest discomfort [None]
  - Oral mucosal exfoliation [None]
  - Swelling face [None]
  - Periorbital swelling [None]
  - Vision blurred [None]
  - Rash macular [None]
  - Eye pain [None]

NARRATIVE: CASE EVENT DATE: 20220325
